FAERS Safety Report 7301788-2 (Version None)
Quarter: 2011Q1

REPORT INFORMATION
  Report Type: 
  Country: None (occurrence: None)
  Receive Date: 20110218
  Receipt Date: 20110207
  Transmission Date: 20110831
  Serious: Yes (Hospitalization)
  Sender: FDA-Public Use
  Company Number: B0639552A

PATIENT
  Sex: Male

DRUGS (7)
  1. DOMPERIDONE [Concomitant]
  2. AMANTADINE HCL [Concomitant]
  3. CO-CARELDOPA [Concomitant]
  4. REQUIP [Suspect]
     Indication: PRODUCT USED FOR UNKNOWN INDICATION
     Dates: start: 20040916, end: 20070501
  5. CABERGOLINE [Concomitant]
  6. SINEMET [Concomitant]
  7. CO-BENELDOPA [Concomitant]

REACTIONS (10)
  - IMPULSIVE BEHAVIOUR [None]
  - LIBIDO INCREASED [None]
  - OBSESSIVE-COMPULSIVE DISORDER [None]
  - EATING DISORDER [None]
  - PATHOLOGICAL GAMBLING [None]
  - ALCOHOL USE [None]
  - PHYSICAL ASSAULT [None]
  - PARANOIA [None]
  - SUICIDE ATTEMPT [None]
  - MULTIPLE DRUG OVERDOSE INTENTIONAL [None]
